FAERS Safety Report 7732997-6 (Version None)
Quarter: 2011Q3

REPORT INFORMATION
  Report Type: 
  Country: None (occurrence: None)
  Receive Date: 20110907
  Receipt Date: 20110826
  Transmission Date: 20111222
  Serious: Yes (Other)
  Sender: FDA-Public Use
  Company Number: US-US-EMD SERONO, INC.-7079422

PATIENT
  Sex: Female
  Weight: 84 kg

DRUGS (5)
  1. TYLENOL-500 [Concomitant]
  2. TOPAMAX [Concomitant]
     Indication: MIGRAINE
  3. REBIF [Suspect]
     Indication: PRODUCT USED FOR UNKNOWN INDICATION
     Route: 058
     Dates: start: 20110509
  4. IBUPROFEN [Concomitant]
  5. CYMBALTA [Concomitant]
     Indication: DEPRESSION

REACTIONS (13)
  - TEMPERATURE INTOLERANCE [None]
  - FALL [None]
  - GAIT DISTURBANCE [None]
  - HYPOAESTHESIA [None]
  - PYREXIA [None]
  - LOSS OF CONSCIOUSNESS [None]
  - MENTAL IMPAIRMENT [None]
  - INJECTION SITE SWELLING [None]
  - CONFUSIONAL STATE [None]
  - INJECTION SITE ERYTHEMA [None]
  - MIGRAINE [None]
  - EYE PAIN [None]
  - HYPERHIDROSIS [None]
